FAERS Safety Report 6024188-4 (Version None)
Quarter: 2008Q4

REPORT INFORMATION
  Report Type: 
  Country: None (occurrence: None)
  Receive Date: 20081224
  Receipt Date: 20081215
  Transmission Date: 20090506
  Serious: Yes (Hospitalization)
  Sender: FDA-Public Use
  Company Number: US025178

PATIENT
  Age: 55 Year
  Sex: Female

DRUGS (1)
  1. PROVIGIL [Suspect]
     Dosage: QD ORAL
     Route: 048
     Dates: start: 20081201, end: 20081204

REACTIONS (1)
  - STEVENS-JOHNSON SYNDROME [None]
